FAERS Safety Report 9313617 (Version 1)
Quarter: 2013Q2

REPORT INFORMATION
  Report Type: Spontaneous
  Country: CH (occurrence: CH)
  Receive Date: 20130528
  Receipt Date: 20130528
  Transmission Date: 20140414
  Serious: Yes (Hospitalization)
  Sender: FDA-Public Use
  Company Number: CH-UCBSA-086781

PATIENT
  Age: 25 Year
  Sex: Female

DRUGS (7)
  1. KEPPRA [Suspect]
     Indication: EPILEPSY
     Dosage: UPTO 4 WEEKS OF AMENORRHEA
     Route: 048
     Dates: start: 201204, end: 2012
  2. KEPPRA [Suspect]
     Indication: EPILEPSY
     Route: 048
     Dates: start: 2012
  3. RIVOTRIL [Suspect]
     Route: 048
  4. DEPAKINE [Suspect]
     Indication: EPILEPSY
     Dosage: UPTO 4 WEEKS OF AMENORRHEA
     Route: 048
     Dates: end: 2012
  5. DEPAKINE [Suspect]
     Indication: EPILEPSY
     Route: 048
     Dates: start: 2012
  6. FOLIC ACID [Concomitant]
     Route: 048
  7. VITAMIN D [Concomitant]
     Route: 048

REACTIONS (2)
  - Abdominal injury [Unknown]
  - Exposure during pregnancy [Recovered/Resolved]
